FAERS Safety Report 20744559 (Version 1)
Quarter: 2022Q2

REPORT INFORMATION
  Report Type: Spontaneous
  Country: US (occurrence: None)
  Receive Date: 20220422
  Receipt Date: 20220422
  Transmission Date: 20220721
  Serious: Yes (Disabling)
  Sender: FDA-Public Use
  Company Number: None

PATIENT
  Age: 66 Year
  Sex: Female
  Weight: 45 kg

DRUGS (5)
  1. CALCITRIOL [Suspect]
     Active Substance: CALCITRIOL
     Indication: Hyperparathyroidism
     Route: 048
     Dates: start: 20220418
  2. CELLCEPT [Concomitant]
     Active Substance: MYCOPHENOLATE MOFETIL
  3. PREDNISONE [Concomitant]
     Active Substance: PREDNISONE
  4. SELENIUM [Concomitant]
     Active Substance: SELENIUM
  5. VITAMIN B12 [Concomitant]
     Active Substance: CYANOCOBALAMIN

REACTIONS (7)
  - Alopecia [None]
  - Fatigue [None]
  - Rash [None]
  - Swelling face [None]
  - Peripheral swelling [None]
  - Joint swelling [None]
  - Pruritus [None]

NARRATIVE: CASE EVENT DATE: 20220418
